FAERS Safety Report 20182689 (Version 1)
Quarter: 2021Q4

REPORT INFORMATION
  Report Type: Spontaneous
  Country: PT (occurrence: PT)
  Receive Date: 20211214
  Receipt Date: 20211214
  Transmission Date: 20220303
  Serious: Yes (Death, Other)
  Sender: FDA-Public Use
  Company Number: PT-BoehringerIngelheim-2021-BI-111738

PATIENT
  Age: 56 Year
  Sex: Female
  Weight: 50 kg

DRUGS (6)
  1. CARBOPLATIN [Suspect]
     Active Substance: CARBOPLATIN
     Indication: Lung adenocarcinoma
     Dates: start: 202103
  2. PEMETREXED [Suspect]
     Active Substance: PEMETREXED
     Indication: Lung adenocarcinoma
     Dates: start: 202103
  3. AFATINIB DIMALEATE [Suspect]
     Active Substance: AFATINIB DIMALEATE
     Indication: Lung adenocarcinoma
  4. AFATINIB DIMALEATE [Suspect]
     Active Substance: AFATINIB DIMALEATE
  5. AFATINIB DIMALEATE [Suspect]
     Active Substance: AFATINIB DIMALEATE
  6. TALC [Suspect]
     Active Substance: TALC
     Indication: Product used for unknown indication

REACTIONS (4)
  - Death [Fatal]
  - Pleural effusion [Unknown]
  - Diarrhoea [Unknown]
  - Rash [Unknown]

NARRATIVE: CASE EVENT DATE: 20210901
